FAERS Safety Report 9517582 (Version 3)
Quarter: 2013Q4

REPORT INFORMATION
  Report Type: Report from Study
  Country: CA (occurrence: CA)
  Receive Date: 20130912
  Receipt Date: 20131016
  Transmission Date: 20140711
  Serious: Yes (Other)
  Sender: FDA-Public Use
  Company Number: CA-ROCHE-1273845

PATIENT
  Age: 45 Year
  Sex: Male

DRUGS (5)
  1. LUCENTIS [Suspect]
     Indication: DIABETIC RETINAL OEDEMA
     Route: 050
  2. INSULIN [Concomitant]
  3. LEVEMIR [Concomitant]
  4. METFORMIN [Concomitant]
  5. ONGLYZA [Concomitant]

REACTIONS (2)
  - Macular oedema [Not Recovered/Not Resolved]
  - Macular oedema [Not Recovered/Not Resolved]
